FAERS Safety Report 12130332 (Version 2)
Quarter: 2016Q1

REPORT INFORMATION
  Report Type: Spontaneous
  Country: BR (occurrence: BR)
  Receive Date: 20160301
  Receipt Date: 20160330
  Transmission Date: 20160526
  Serious: Yes (Other)
  Sender: FDA-Public Use
  Company Number: PHHY2016BR026616

PATIENT
  Age: 25 Year
  Sex: Female

DRUGS (2)
  1. GILENYA [Suspect]
     Active Substance: FINGOLIMOD HYDROCHLORIDE
     Indication: MULTIPLE SCLEROSIS
     Dosage: 0.5 MG, QD
     Route: 048
     Dates: start: 201211, end: 201412
  2. GILENYA [Suspect]
     Active Substance: FINGOLIMOD HYDROCHLORIDE
     Dosage: 0.5 MG, QW5
     Route: 048
     Dates: start: 201412, end: 201502

REACTIONS (5)
  - Lymphopenia [Not Recovered/Not Resolved]
  - Prescribed underdose [Unknown]
  - Molluscum contagiosum [Not Recovered/Not Resolved]
  - Injury [Not Recovered/Not Resolved]
  - Genital herpes simplex [Not Recovered/Not Resolved]

NARRATIVE: CASE EVENT DATE: 201412
